FAERS Safety Report 5486857-4 (Version None)
Quarter: 2007Q3

REPORT INFORMATION
  Report Type: 
  Country: None (occurrence: None)
  Receive Date: 20070925
  Receipt Date: 20070817
  Transmission Date: 20080115
  Serious: No
  Sender: FDA-Public Use
  Company Number: 2007US001992

PATIENT
  Sex: Female

DRUGS (2)
  1. VESICARE [Suspect]
     Indication: URINARY INCONTINENCE
     Dosage: 5 MG, UID/QD, ORAL; 10 MG, UID/QD, ORAL
     Route: 048
     Dates: start: 20060101
  2. VESICARE [Suspect]
     Indication: URINARY INCONTINENCE
     Dosage: 5 MG, UID/QD, ORAL; 10 MG, UID/QD, ORAL
     Route: 048
     Dates: start: 20060101

REACTIONS (1)
  - DRUG INEFFECTIVE [None]
